FAERS Safety Report 25341605 (Version 1)
Quarter: 2025Q2

REPORT INFORMATION
  Report Type: Spontaneous
  Country: FR (occurrence: FR)
  Receive Date: 20250521
  Receipt Date: 20250521
  Transmission Date: 20250717
  Serious: Yes (Hospitalization)
  Sender: FRESENIUS KABI
  Company Number: None

PATIENT
  Age: 57 Year
  Sex: Female

DRUGS (6)
  1. PEMETREXED [Suspect]
     Active Substance: PEMETREXED
     Indication: Bronchial carcinoma
     Dosage: 900 MG BEFORE AND 200 MG ON 02/24?FOA: SOLUTION FOR INFUSION
     Route: 042
     Dates: start: 202410, end: 202503
  2. PEMBROLIZUMAB [Suspect]
     Active Substance: PEMBROLIZUMAB
     Indication: Bronchial carcinoma
     Dosage: FOA: SOLUTION FOR INFUSION
     Route: 042
     Dates: start: 202410, end: 202503
  3. RAMIPRIL [Concomitant]
     Active Substance: RAMIPRIL
     Indication: Product used for unknown indication
     Dosage: FOA: TABLET
     Route: 048
  4. BISOPROLOL (ACID FUMARATE OF) [BISOPROLOL (ACID FUMARATE OF)] [Concomitant]
     Indication: Product used for unknown indication
     Dosage: FOA: TABLET
     Route: 048
  5. KARDEGIC 160 mg, powder for drinkable solution in sachet [DL-LYSINE AC [Concomitant]
     Indication: Product used for unknown indication
     Dosage: FOA: POWDER FOR SOLUTION
     Route: 048
  6. EZETIMIBE/ATORVASTATINE ZENTIVA 10 mg/80 mg, film-coated tablet [ATORV [Concomitant]
     Indication: Product used for unknown indication
     Dosage: 10/80
     Route: 048

REACTIONS (1)
  - Hepatitis acute [Recovering/Resolving]

NARRATIVE: CASE EVENT DATE: 20250201
